FAERS Safety Report 8396629-9 (Version None)
Quarter: 2012Q2

REPORT INFORMATION
  Report Type: 
  Country: None (occurrence: None)
  Receive Date: 20120530
  Receipt Date: 20120523
  Transmission Date: 20120825
  Serious: No
  Sender: FDA-Public Use
  Company Number: US-PFIZER INC-2012125471

PATIENT
  Sex: Female

DRUGS (2)
  1. ENABLEX [Suspect]
     Dosage: UNK
  2. DETROL LA [Suspect]
     Dosage: 2 MG, UNK
     Dates: start: 20120519

REACTIONS (1)
  - FATIGUE [None]
